FAERS Safety Report 8152789-6 (Version None)
Quarter: 2012Q1

REPORT INFORMATION
  Report Type: 
  Country: None (occurrence: None)
  Receive Date: 20120215
  Receipt Date: 20120206
  Transmission Date: 20120608
  Serious: Yes (Death, Other)
  Sender: FDA-Public Use
  Company Number: 2012MA001676

PATIENT
  Sex: Male

DRUGS (6)
  1. ASPIRIN [Concomitant]
  2. DIGOXIN [Suspect]
     Indication: PRODUCT USED FOR UNKNOWN INDICATION
     Dosage: 0.25 MG;QD;PO
     Route: 048
     Dates: start: 20050112, end: 20070601
  3. METFORMIN HCL [Concomitant]
  4. AMOXIL [Concomitant]
  5. NOVOLIN 70/30 [Concomitant]
  6. LANTUS [Concomitant]

REACTIONS (31)
  - PNEUMONIA [None]
  - AORTIC ARTERIOSCLEROSIS [None]
  - PLEURAL EFFUSION [None]
  - OROPHARYNGEAL PAIN [None]
  - RESPIRATORY DISTRESS [None]
  - BLOOD PRESSURE SYSTOLIC INCREASED [None]
  - ELECTROCARDIOGRAM REPOLARISATION ABNORMALITY [None]
  - CEREBRAL INFARCTION [None]
  - UNEVALUABLE EVENT [None]
  - TONSILLAR HYPERTROPHY [None]
  - MYOCARDIAL ISCHAEMIA [None]
  - MULTIPLE INJURIES [None]
  - PHARYNGITIS [None]
  - TYPE 2 DIABETES MELLITUS [None]
  - LEFT ATRIAL DILATATION [None]
  - MITRAL VALVE INCOMPETENCE [None]
  - TRICUSPID VALVE INCOMPETENCE [None]
  - CARDIOMEGALY [None]
  - ECONOMIC PROBLEM [None]
  - HYPERTENSION [None]
  - HEART RATE IRREGULAR [None]
  - LEFT VENTRICULAR HYPERTROPHY [None]
  - MITRAL VALVE CALCIFICATION [None]
  - BRAIN OEDEMA [None]
  - WEIGHT DECREASED [None]
  - DYSPNOEA [None]
  - PULMONARY HYPERTENSION [None]
  - LUNG INFILTRATION [None]
  - BLOOD GLUCOSE DECREASED [None]
  - ATRIAL FIBRILLATION [None]
  - ATELECTASIS [None]
